FAERS Safety Report 7544229-2 (Version None)
Quarter: 2011Q2

REPORT INFORMATION
  Report Type: 
  Country: None (occurrence: None)
  Receive Date: 20110613
  Receipt Date: 20070709
  Transmission Date: 20111010
  Serious: Yes (Hospitalization)
  Sender: FDA-Public Use
  Company Number: PHNR2005AU00706

PATIENT
  Sex: Female

DRUGS (13)
  1. VALPROATE SODIUM [Concomitant]
  2. RANITIDINE [Concomitant]
  3. GLICLAZIDE [Concomitant]
  4. PULMICORT [Concomitant]
  5. CLOZAPINE [Suspect]
     Dosage: 0-300 MG, DAY
     Route: 048
     Dates: start: 20011115
  6. SIMVASTATIN [Concomitant]
  7. ASCORBIC ACID [Concomitant]
  8. FERROUS SULFATE TAB [Concomitant]
  9. ALBUTEROL [Concomitant]
  10. IPRATROPIUM BROMIDE [Concomitant]
  11. METFORMIN HCL [Concomitant]
  12. SALMETEROL [Concomitant]
  13. MULTI-VITAMINS [Concomitant]

REACTIONS (3)
  - ASTHMA [None]
  - CHRONIC OBSTRUCTIVE PULMONARY DISEASE [None]
  - URINARY TRACT INFECTION [None]
